FAERS Safety Report 4562675-6 (Version None)
Quarter: 2005Q1

REPORT INFORMATION
  Report Type: 
  Country: None (occurrence: None)
  Receive Date: 20050124
  Receipt Date: 20041201
  Transmission Date: 20050727
  Serious: Yes (Hospitalization)
  Sender: FDA-Public Use
  Company Number: 2004213413FR

PATIENT
  Age: 53 Year
  Sex: Female
  Weight: 86 kg

DRUGS (6)
  1. PHARMORUBICIN RD (EPIRUBICIN HYDROCHLORIDE) [Suspect]
     Indication: BREAST CANCER
     Dosage: 155 MG (CYCLIC)
     Dates: start: 20040407, end: 20040407
  2. CYCLOPHOSPHAMIDE [Suspect]
     Indication: BREAST CANCER
     Dosage: 985 MG (CYCLIC)
     Dates: start: 20040407, end: 20040407
  3. FLUOROURACIL [Suspect]
     Indication: BREAST CANCER
     Dosage: 985 MG (CYCLIC)
     Dates: start: 20040407, end: 20040407
  4. ONDANSETRON [Concomitant]
  5. METHYLPREDNISOLONE [Concomitant]
  6. METOCLOPRAMIDE [Concomitant]

REACTIONS (5)
  - MYALGIA [None]
  - PAIN IN EXTREMITY [None]
  - STAPHYLOCOCCAL ABSCESS [None]
  - STAPHYLOCOCCAL SEPSIS [None]
  - VOMITING [None]
